FAERS Safety Report 17443950 (Version 1)
Quarter: 2020Q1

REPORT INFORMATION
  Report Type: Spontaneous
  Country: US (occurrence: US)
  Receive Date: 20200221
  Receipt Date: 20200221
  Transmission Date: 20200409
  Serious: Yes (Hospitalization, Other)
  Sender: FDA-Public Use
  Company Number: US-BRISTOL-MYERS SQUIBB COMPANY-BMS-2019-126417

PATIENT
  Sex: Female

DRUGS (2)
  1. ORENCIA [Suspect]
     Active Substance: ABATACEPT
     Indication: PRODUCT USED FOR UNKNOWN INDICATION
     Dosage: 125 MILLIGRAM, QWK
     Route: 058
  2. ORENCIA [Suspect]
     Active Substance: ABATACEPT
     Indication: PRODUCT USED FOR UNKNOWN INDICATION
     Dosage: UNK, QMO
     Route: 065

REACTIONS (9)
  - Lactic acidosis [Unknown]
  - Febrile neutropenia [Unknown]
  - Septic shock [Unknown]
  - Haemoglobin decreased [Unknown]
  - Cardiac arrest [Unknown]
  - Autoimmune hepatitis [Unknown]
  - Pancytopenia [Unknown]
  - Hepatic encephalopathy [Unknown]
  - Hypoglycaemia [Unknown]
